FAERS Safety Report 7568661-6 (Version None)
Quarter: 2011Q2

REPORT INFORMATION
  Report Type: 
  Country: None (occurrence: None)
  Receive Date: 20110623
  Receipt Date: 20110613
  Transmission Date: 20111010
  Serious: Yes (Death, Hospitalization)
  Sender: FDA-Public Use
  Company Number: BR-BRISTOL-MYERS SQUIBB COMPANY-15301500

PATIENT
  Age: 76 Year
  Sex: Female

DRUGS (9)
  1. LOSARTAN POTASSIUM [Concomitant]
     Dates: start: 20100618
  2. FUROSEMIDE [Concomitant]
     Dates: start: 20100104
  3. SIMVASTATIN [Concomitant]
     Dates: start: 20090624
  4. PLACEBO [Suspect]
     Indication: THROMBOSIS PROPHYLAXIS
     Dosage: INTERRUPTED ON: 17SEP10.
     Route: 048
     Dates: start: 20081216
  5. WARFARIN SODIUM [Suspect]
     Indication: THROMBOSIS PROPHYLAXIS
     Dosage: INTERRUPTED ON: 17SEP10.
     Route: 048
     Dates: start: 20081216
  6. ALPRAZOLAM [Concomitant]
     Dates: start: 20100609
  7. QUETIAPINE [Concomitant]
     Dates: start: 20100302
  8. ATENOLOL [Concomitant]
     Dates: start: 20090624
  9. SERTRALINE HYDROCHLORIDE [Concomitant]
     Dates: start: 20100609

REACTIONS (1)
  - ISCHAEMIC STROKE [None]
